FAERS Safety Report 6134098-X (Version None)
Quarter: 2009Q1

REPORT INFORMATION
  Report Type: 
  Country: None (occurrence: None)
  Receive Date: 20090326
  Receipt Date: 20090318
  Transmission Date: 20090719
  Serious: Yes (Death, Hospitalization)
  Sender: FDA-Public Use
  Company Number: US-GILEAD-2009-0020003

PATIENT
  Sex: Female

DRUGS (13)
  1. LETAIRIS [Suspect]
     Indication: PULMONARY ARTERIAL HYPERTENSION
     Route: 048
     Dates: start: 20081217, end: 20090112
  2. LASIX [Concomitant]
  3. COREG [Concomitant]
  4. NORVASC [Concomitant]
  5. ATACAND [Concomitant]
  6. CARVEDILOL [Concomitant]
  7. HYDRALAZINE HCL [Concomitant]
  8. IMDUR [Concomitant]
  9. PLAVIX [Concomitant]
  10. LIPITOR [Concomitant]
  11. SYNTHROID [Concomitant]
  12. ZYLOPRIM [Concomitant]
  13. PRILOSEC [Concomitant]

REACTIONS (6)
  - DEATH [None]
  - GASTROINTESTINAL HAEMORRHAGE [None]
  - HAEMOLYTIC ANAEMIA [None]
  - HYPOVOLAEMIC SHOCK [None]
  - RENAL FAILURE ACUTE [None]
  - THROMBOCYTOPENIA [None]
